FAERS Safety Report 9011952 (Version 1)
Quarter: 2012Q4

REPORT INFORMATION
  Report Type: Spontaneous
  Country: US (occurrence: None)
  Receive Date: 20121228
  Receipt Date: 20121228
  Transmission Date: 20130627
  Serious: Yes (Other)
  Sender: FDA-Public Use
  Company Number: FK201204108

PATIENT
  Age: 64 Year
  Sex: Female

DRUGS (2)
  1. FLUDARABINE (FLUDARABINE) [Suspect]
     Indication: PROLYMPHOCYTIC LEUKAEMIA
     Dates: start: 200209, end: 200202
  2. FLUDARABINE (FLUDARABINE) [Suspect]
     Indication: PROLYMPHOCYTIC LEUKAEMIA
     Dates: start: 200909, end: 200909

REACTIONS (2)
  - Chest discomfort [None]
  - Rash [None]
